FAERS Safety Report 20701010 (Version 5)
Quarter: 2022Q4

REPORT INFORMATION
  Report Type: Report from Study
  Country: US (occurrence: None)
  Receive Date: 20220412
  Receipt Date: 20221201
  Transmission Date: 20230113
  Serious: Yes (Other)
  Sender: FDA-Public Use
  Company Number: US-Merck Healthcare KGaA-9311975

PATIENT
  Sex: Female

DRUGS (5)
  1. MAVENCLAD [Suspect]
     Active Substance: CLADRIBINE
     Indication: Multiple sclerosis
     Dosage: YEAR ONE MONTH ONE THERAPY: 20 MG ON DAYS 1 TO 2 AND 10 MG ON DAYS 3 TO 5.
     Route: 048
     Dates: start: 20210419, end: 20210423
  2. MAVENCLAD [Suspect]
     Active Substance: CLADRIBINE
     Dosage: YEAR ONE MONTH TWO THERAPY: 20 MG ON DAYS 1 TO 2 AND 10 MG ON DAYS 3 TO 5
     Route: 048
     Dates: start: 202105, end: 20210523
  3. MOMETASONE FUROATE [Concomitant]
     Active Substance: MOMETASONE FUROATE
     Indication: Multiple allergies
  4. SINGULAIR [Concomitant]
     Active Substance: MONTELUKAST SODIUM
     Indication: Multiple allergies
  5. METFORMIN [Concomitant]
     Active Substance: METFORMIN HYDROCHLORIDE
     Indication: Diabetes mellitus

REACTIONS (9)
  - Diverticulitis [Not Recovered/Not Resolved]
  - Oesophageal hypomotility [Unknown]
  - Swelling [Unknown]
  - Contusion [Unknown]
  - Dysphonia [Unknown]
  - Colitis [Not Recovered/Not Resolved]
  - Sneezing [Unknown]
  - Eye pruritus [Unknown]
  - Hypersensitivity [Unknown]
